FAERS Safety Report 22265385 (Version 2)
Quarter: 2023Q2

REPORT INFORMATION
  Report Type: Spontaneous
  Country: GB (occurrence: GB)
  Receive Date: 20230428
  Receipt Date: 20230508
  Transmission Date: 20230722
  Serious: Yes (Life-Threatening, Hospitalization, Disabling, Other)
  Sender: FDA-Public Use
  Company Number: None

PATIENT
  Age: 15 Year
  Sex: Male

DRUGS (8)
  1. PHENYTOIN SODIUM [Suspect]
     Active Substance: PHENYTOIN SODIUM
     Indication: Partial seizures
     Dosage: 250 MILLIGRAM, QD (250MG PER DAY)
     Route: 065
     Dates: start: 20180612, end: 20200625
  2. LEVETIRACETAM [Suspect]
     Active Substance: LEVETIRACETAM
     Dosage: 1000 MILLIGRAM, QD (1000MG PER DAY)
     Route: 065
     Dates: start: 20160429, end: 20170423
  3. LEVETIRACETAM [Suspect]
     Active Substance: LEVETIRACETAM
     Dosage: MAXIMUM DOSE 2000MG PER DAY; ;
     Route: 065
     Dates: start: 20180616, end: 20190101
  4. CARBAMAZEPINE [Suspect]
     Active Substance: CARBAMAZEPINE
     Indication: Seizure
     Dosage: 200 MILLIGRAM, QD (200MG PER DAY)
     Route: 065
     Dates: start: 20160312, end: 20160429
  5. LAMOTRIGINE [Suspect]
     Active Substance: LAMOTRIGINE
     Indication: Seizure
     Dosage: MAXIMUM DOSE 250MG PER DAY; ;
     Route: 065
     Dates: start: 20161012, end: 20180606
  6. VALPROIC ACID [Suspect]
     Active Substance: VALPROIC ACID
     Indication: Seizure
     Dosage: MAX DOSE 1200MG PER DAY;
     Route: 065
     Dates: start: 20160429, end: 20160911
  7. CLOBAZAM [Suspect]
     Active Substance: CLOBAZAM
     Indication: Seizure
     Dosage: MAXIMUM DOSE 20MG PER DAY;
     Route: 065
     Dates: start: 20180609, end: 20190416
  8. LACOSAMIDE [Suspect]
     Active Substance: LACOSAMIDE
     Indication: Seizure
     Dosage: 300 MILLIGRAM, QD (300MG PER DAY;)
     Route: 065
     Dates: start: 20180208, end: 20180811

REACTIONS (4)
  - Medication error [Unknown]
  - Fatigue [Recovered/Resolved]
  - Seizure [Recovered/Resolved]
  - Memory impairment [Recovered/Resolved]

NARRATIVE: CASE EVENT DATE: 20180101
